FAERS Safety Report 10224128 (Version 1)
Quarter: 2014Q2

REPORT INFORMATION
  Report Type: Spontaneous
  Country: JP (occurrence: None)
  Receive Date: 20140605
  Receipt Date: 20140605
  Transmission Date: 20141212
  Serious: Yes (Death)
  Sender: FDA-Public Use
  Company Number: SYM-2014-21402

PATIENT
  Sex: 0

DRUGS (2)
  1. FLUOROURACIL [Suspect]
     Indication: METASTATIC SQUAMOUS CELL CARCINOMA
  2. NEDAPLATIN [Suspect]
     Indication: METASTATIC SQUAMOUS CELL CARCINOMA

REACTIONS (2)
  - Febrile neutropenia [None]
  - Septic shock [None]
